FAERS Safety Report 8623199-X (Version None)
Quarter: 2012Q3

REPORT INFORMATION
  Report Type: 
  Country: None (occurrence: None)
  Receive Date: 20120827
  Receipt Date: 20120820
  Transmission Date: 20120928
  Serious: No
  Sender: FDA-Public Use
  Company Number: US-BAYER-2012-087205

PATIENT
  Age: 5 Year
  Sex: Male

DRUGS (4)
  1. ALEVE (CAPLET) [Suspect]
     Dosage: 1/2 DF, ONCE
     Route: 048
     Dates: start: 20120820
  2. ALBUTEROL [Concomitant]
     Indication: ASTHMA
  3. SINGULAIR [Concomitant]
  4. FLOVENT [Concomitant]

REACTIONS (1)
  - NO ADVERSE EVENT [None]
